FAERS Safety Report 4668023-5 (Version None)
Quarter: 2005Q2

REPORT INFORMATION
  Report Type: 
  Country: None (occurrence: None)
  Receive Date: 20050520
  Receipt Date: 20050512
  Transmission Date: 20051028
  Serious: Yes (Death)
  Sender: FDA-Public Use
  Company Number: GB-MERCK-0505GBR00116

PATIENT
  Sex: Male

DRUGS (11)
  1. ZOCOR [Suspect]
     Route: 048
  2. TIOTROPIUM BROMIDE [Suspect]
     Route: 055
  3. ALLOPURINOL [Suspect]
     Route: 065
  4. DIGOXIN [Suspect]
     Route: 065
  5. FUROSEMIDE [Suspect]
     Route: 065
  6. PANTOPRAZOLE [Suspect]
     Route: 065
  7. PERINDOPRIL [Suspect]
     Route: 065
  8. WARFARIN [Suspect]
     Route: 065
  9. BECLOMETHASONE DIPROPIONATE [Suspect]
     Route: 065
  10. ALBUTEROL [Suspect]
     Route: 055
  11. ACETAMINOPHEN [Suspect]
     Route: 065

REACTIONS (1)
  - AORTIC DISSECTION [None]
